FAERS Safety Report 11218527 (Version 1)
Quarter: 2015Q2

REPORT INFORMATION
  Report Type: Spontaneous
  Country: US (occurrence: None)
  Receive Date: 20150624
  Receipt Date: 20150624
  Transmission Date: 20150821
  Serious: No
  Sender: FDA-Public Use
  Company Number: None

PATIENT
  Age: 46 Year
  Sex: Female
  Weight: 74.84 kg

DRUGS (1)
  1. HUMIRA [Suspect]
     Active Substance: ADALIMUMAB
     Indication: SYSTEMIC LUPUS ERYTHEMATOSUS
     Dosage: DOSE FORM: INJECTABLE  FREQUENCY: Q 2 WEEKS  ROUTE: SUBCUTANEOUS
     Route: 058
     Dates: start: 201504

REACTIONS (4)
  - Diarrhoea [None]
  - Influenza like illness [None]
  - Feeling abnormal [None]
  - Pyrexia [None]

NARRATIVE: CASE EVENT DATE: 20150522
